FAERS Safety Report 17350278 (Version 2)
Quarter: 2020Q1

REPORT INFORMATION
  Report Type: Spontaneous
  Country: US (occurrence: US)
  Receive Date: 20200130
  Receipt Date: 20200227
  Transmission Date: 20200409
  Serious: No
  Sender: FDA-Public Use
  Company Number: US-AMGEN-USASP2020010067

PATIENT
  Age: 49 Year
  Sex: Female

DRUGS (5)
  1. BENTYL [Concomitant]
     Active Substance: DICYCLOMINE HYDROCHLORIDE
     Indication: INFLAMMATORY BOWEL DISEASE
     Dosage: 10 MILLIGRAM
  2. PROLIA [Suspect]
     Active Substance: DENOSUMAB
     Indication: PRODUCT USED FOR UNKNOWN INDICATION
     Dosage: UNK
     Route: 065
  3. PREDNISONE. [Concomitant]
     Active Substance: PREDNISONE
     Dosage: 1 TAB 10 DAYS
  4. FLEXERIL [CEFIXIME] [Concomitant]
     Active Substance: CEFIXIME
  5. TYLENOL [Concomitant]
     Active Substance: ACETAMINOPHEN

REACTIONS (18)
  - Toothache [Unknown]
  - Gastrointestinal disorder [Unknown]
  - Fatigue [Unknown]
  - Muscle spasms [Unknown]
  - Increased tendency to bruise [Unknown]
  - Insomnia [Unknown]
  - Pain [Recovering/Resolving]
  - Weight increased [Unknown]
  - Neck pain [Unknown]
  - Muscle tightness [Unknown]
  - Headache [Unknown]
  - Musculoskeletal pain [Unknown]
  - Off label use [Unknown]
  - Mobility decreased [Unknown]
  - Tremor [Unknown]
  - Chest expansion decreased [Unknown]
  - Spinal pain [Not Recovered/Not Resolved]
  - Arthralgia [Unknown]

NARRATIVE: CASE EVENT DATE: 20190418
